FAERS Safety Report 6573933-8 (Version None)
Quarter: 2010Q1

REPORT INFORMATION
  Report Type: 
  Country: None (occurrence: None)
  Receive Date: 20100208
  Receipt Date: 20100129
  Transmission Date: 20100710
  Serious: Yes (Other)
  Sender: FDA-Public Use
  Company Number: JP-PFIZER INC-2010015667

PATIENT

DRUGS (1)
  1. AZULFIDINE [Suspect]
     Dosage: UNK
     Route: 048

REACTIONS (1)
  - BLOOD GLUCOSE DECREASED [None]
